FAERS Safety Report 5272994-6 (Version None)
Quarter: 2007Q1

REPORT INFORMATION
  Report Type: 
  Country: None (occurrence: None)
  Receive Date: 20070322
  Receipt Date: 20070313
  Transmission Date: 20070707
  Serious: Yes (Other)
  Sender: FDA-Public Use
  Company Number: NO-PFIZER INC-2007020319

PATIENT
  Age: 61 Year
  Sex: Male

DRUGS (3)
  1. LYRICA [Suspect]
     Indication: NEURALGIA
     Route: 048
  2. HERBAL PREPARATION [Concomitant]
     Route: 048
  3. PARACET [Concomitant]

REACTIONS (10)
  - ARTHRALGIA [None]
  - BALANCE DISORDER [None]
  - CLUMSINESS [None]
  - FEELING DRUNK [None]
  - GAIT DISTURBANCE [None]
  - JOINT STIFFNESS [None]
  - NEURALGIA [None]
  - SOMNOLENCE [None]
  - SWELLING [None]
  - VISION BLURRED [None]
